FAERS Safety Report 4892706-5 (Version None)
Quarter: 2006Q1

REPORT INFORMATION
  Report Type: 
  Country: None (occurrence: None)
  Receive Date: 20060126
  Receipt Date: 20060106
  Transmission Date: 20060701
  Serious: Yes (Death, Hospitalization)
  Sender: FDA-Public Use
  Company Number: FR-AVENTIS-200610063FR

PATIENT
  Age: 55 Year
  Sex: Female
  Weight: 73 kg

DRUGS (4)
  1. TAXOTERE [Suspect]
     Indication: BREAST CANCER METASTATIC
     Route: 042
     Dates: end: 20051103
  2. MYOCET [Suspect]
     Indication: BREAST CANCER METASTATIC
     Route: 042
     Dates: end: 20051103
  3. VENTOLIN [Concomitant]
     Indication: ASTHMA
  4. BECOTIDE [Concomitant]
     Indication: ASTHMA

REACTIONS (2)
  - CARDIAC FAILURE [None]
  - CARDIOGENIC SHOCK [None]
